FAERS Safety Report 4942495-0 (Version None)
Quarter: 2006Q1

REPORT INFORMATION
  Report Type: 
  Country: None (occurrence: None)
  Receive Date: 20060313
  Receipt Date: 20050315
  Transmission Date: 20060701
  Serious: No
  Sender: FDA-Public Use
  Company Number: US-GLAXOSMITHKLINE-A0549779A

PATIENT
  Age: 49 Year
  Sex: Female

DRUGS (3)
  1. EQUATE NICOTINE GUM 2MG [Suspect]
  2. EQUATE NICOTINE GUM 4MG [Suspect]
  3. COMMIT [Suspect]

REACTIONS (4)
  - ANOREXIA [None]
  - ENDODONTIC PROCEDURE [None]
  - INCREASED APPETITE [None]
  - TOOTH EROSION [None]
